FAERS Safety Report 17812866 (Version 1)
Quarter: 2020Q2

REPORT INFORMATION
  Report Type: Spontaneous
  Country: US (occurrence: US)
  Receive Date: 20200521
  Receipt Date: 20200521
  Transmission Date: 20200714
  Serious: Yes (Hospitalization)
  Sender: FDA-Public Use
  Company Number: None

PATIENT
  Age: 73 Year
  Sex: Male

DRUGS (6)
  1. GLATIRAMER [Suspect]
     Active Substance: GLATIRAMER
     Route: 058
     Dates: start: 20190223
  2. PREVIDENT 5000 PST 1.1-5% [Concomitant]
  3. PREDNISOLONE SUS 1% OP [Concomitant]
  4. CLONAZEPAM TAB 0.5 MG [Concomitant]
  5. PREDNISONE TAB 10 MG [Concomitant]
  6. COMBIGAN [Concomitant]
     Active Substance: BRIMONIDINE TARTRATE\TIMOLOL MALEATE

REACTIONS (1)
  - Asthenia [None]
